FAERS Safety Report 18323429 (Version 4)
Quarter: 2022Q2

REPORT INFORMATION
  Report Type: Spontaneous
  Country: BR (occurrence: BR)
  Receive Date: 20200929
  Receipt Date: 20220628
  Transmission Date: 20220721
  Serious: Yes (Hospitalization, Other)
  Sender: FDA-Public Use
  Company Number: BR-GLAXOSMITHKLINE-BR2020AMR133662

PATIENT

DRUGS (8)
  1. NUCALA [Suspect]
     Active Substance: MEPOLIZUMAB
     Indication: Asthma
     Dosage: 100 MG, Z, EVERY 4 WEEKS
  2. ASTRAZENECA COVID-19 VACCINE [Suspect]
     Active Substance: AZD-1222
     Indication: Product used for unknown indication
     Dosage: UNK
  3. ASTRAZENECA COVID-19 VACCINE [Suspect]
     Active Substance: AZD-1222
     Dosage: UNK
  4. INFLUENZA VIRUS VACCINE [Suspect]
     Active Substance: INFLUENZA VIRUS VACCINE
     Indication: Product used for unknown indication
     Dosage: UNK
  5. SPIRIVA [Suspect]
     Active Substance: TIOTROPIUM BROMIDE MONOHYDRATE
     Indication: Rhinitis
     Dosage: UNK UNK, BID (MORNING AND NIGHT)
  6. BUDESONIDE\FORMOTEROL FUMARATE [Suspect]
     Active Substance: BUDESONIDE\FORMOTEROL FUMARATE
     Indication: Rhinitis
     Dosage: UNK UNK, BID (MORNING AND NIGHT)
  7. PNEUMOCOCCAL VACCINE POLYVALENT NOS [Suspect]
     Active Substance: PNEUMOCOCCAL VACCINE POLYVALENT
     Indication: Product used for unknown indication
     Dosage: UNK
     Dates: start: 201610
  8. PREDNISONE [Concomitant]
     Active Substance: PREDNISONE
     Indication: Product used for unknown indication
     Dosage: UNK

REACTIONS (22)
  - Influenza [Recovered/Resolved]
  - Pneumonia [Recovered/Resolved]
  - Asthma [Unknown]
  - Dyspnoea [Unknown]
  - Suffocation feeling [Unknown]
  - Wheezing [Unknown]
  - Sneezing [Unknown]
  - Rhinorrhoea [Unknown]
  - Loss of personal independence in daily activities [Unknown]
  - Back pain [Unknown]
  - Cough [Unknown]
  - Abdominal pain [Unknown]
  - Headache [Unknown]
  - Weight decreased [Unknown]
  - Emphysema [Unknown]
  - Malaise [Unknown]
  - Memory impairment [Unknown]
  - Rhinitis [Unknown]
  - Immunisation reaction [Recovered/Resolved]
  - Inappropriate schedule of product administration [Unknown]
  - Product dose omission issue [Unknown]
  - Product availability issue [Unknown]

NARRATIVE: CASE EVENT DATE: 20200801
